FAERS Safety Report 14113508 (Version 1)
Quarter: 2017Q4

REPORT INFORMATION
  Report Type: Spontaneous
  Country: US (occurrence: US)
  Receive Date: 20171022
  Receipt Date: 20171022
  Transmission Date: 20180321
  Serious: No
  Sender: FDA-Public Use
  Company Number: None

PATIENT
  Age: 6 Year
  Sex: Male
  Weight: 20.7 kg

DRUGS (4)
  1. ALBUTEROL SOLUTION NEBULISER SOLUTION [Concomitant]
     Active Substance: ALBUTEROL
  2. PLEXUS CHILDREN^S MULTIVITAMINS [Concomitant]
  3. ALBUTEROL HFA [Concomitant]
     Active Substance: ALBUTEROL SULFATE
  4. MONTELUKAST SODIUM. [Suspect]
     Active Substance: MONTELUKAST SODIUM
     Indication: SEASONAL ALLERGY
     Dosage: ?          QUANTITY:1 TABLET(S);?
     Route: 048

REACTIONS (3)
  - Drug ineffective [None]
  - Urticaria [None]
  - Product substitution issue [None]
